FAERS Safety Report 19419954 (Version 1)
Quarter: 2021Q2

REPORT INFORMATION
  Report Type: Report from Study
  Country: GB (occurrence: GB)
  Receive Date: 20210615
  Receipt Date: 20210615
  Transmission Date: 20210717
  Serious: Yes (Other)
  Sender: FDA-Public Use
  Company Number: GB-MYLANLABS-2021M1017495

PATIENT
  Age: 76 Year
  Sex: Female

DRUGS (4)
  1. FAMOTIDINE. [Suspect]
     Active Substance: FAMOTIDINE
     Indication: PRODUCT USED FOR UNKNOWN INDICATION
     Dosage: UNK
  2. SOMATULINE                         /01330102/ [Suspect]
     Active Substance: LANREOTIDE ACETATE
     Indication: NEUROENDOCRINE TUMOUR
     Dosage: 120 MG, AS DIRECTED
     Route: 058
  3. SOMATULINE                         /01330102/ [Suspect]
     Active Substance: LANREOTIDE ACETATE
     Dosage: 90MG/0.5ML
     Route: 058
  4. SOMATULINE                         /01330102/ [Suspect]
     Active Substance: LANREOTIDE ACETATE
     Dosage: 90MG/0.5ML
     Route: 065

REACTIONS (8)
  - Vaginal cancer [Unknown]
  - Vulvovaginal candidiasis [Unknown]
  - Fatigue [Unknown]
  - Cystitis [Recovering/Resolving]
  - Abdominal distension [Unknown]
  - Anxiety [Unknown]
  - Constipation [Unknown]
  - Gastrointestinal infection [Recovering/Resolving]
